FAERS Safety Report 4460921-0 (Version None)
Quarter: 2004Q3

REPORT INFORMATION
  Report Type: 
  Country: None (occurrence: None)
  Receive Date: 20040928
  Receipt Date: 20040610
  Transmission Date: 20050211
  Serious: No
  Sender: FDA-Public Use
  Company Number: US-GLAXOSMITHKLINE-A0514161A

PATIENT
  Age: 87 Year
  Sex: Male

DRUGS (17)
  1. ADVAIR DISKUS 100/50 [Suspect]
     Indication: ASTHMA
     Dosage: 1PUFF TWICE PER DAY
     Route: 055
     Dates: start: 20020101
  2. ALTACE [Concomitant]
  3. HYDROCHLOROTHIAZIDE [Concomitant]
  4. THEOPHYLLINE [Concomitant]
  5. METOPROLOL [Concomitant]
  6. ALPHAGAN [Concomitant]
  7. BETHANECOL [Concomitant]
  8. TRIAM-ORAL [Concomitant]
  9. FLOMAX [Concomitant]
  10. ASPIRIN [Concomitant]
  11. MULTI-VITAMIN [Concomitant]
  12. IMODIUM [Concomitant]
  13. ACULAR [Concomitant]
  14. XALATAN [Concomitant]
  15. VITAMIN E [Concomitant]
  16. VITAMIN C [Concomitant]
  17. CIPROXIN [Concomitant]

REACTIONS (2)
  - DYSPNOEA [None]
  - WHEEZING [None]
